FAERS Safety Report 9200335 (Version 1)
Quarter: 2013Q1

REPORT INFORMATION
  Report Type: Spontaneous
  Country: US (occurrence: US)
  Receive Date: 20130329
  Receipt Date: 20130329
  Transmission Date: 20140127
  Serious: Yes (Other)
  Sender: FDA-Public Use
  Company Number: US-ASTRAZENECA-2013SE18784

PATIENT
  Age: 53 Year
  Sex: Female
  Weight: 90.7 kg

DRUGS (1)
  1. NEXIUM [Suspect]
     Indication: GASTROOESOPHAGEAL REFLUX DISEASE
     Dosage: DAILY
     Route: 048

REACTIONS (6)
  - Metastases to bone [Unknown]
  - Metastases to lung [Unknown]
  - Diabetes mellitus [Unknown]
  - Dyspepsia [Unknown]
  - Off label use [Unknown]
  - Intentional drug misuse [Unknown]
